FAERS Safety Report 17657630 (Version 12)
Quarter: 2021Q2

REPORT INFORMATION
  Report Type: Other
  Country: DE (occurrence: DE)
  Receive Date: 20200411
  Receipt Date: 20210626
  Transmission Date: 20210716
  Serious: Yes (Other)
  Sender: FDA-Public Use
  Company Number: DE-ROCHE-2248497

PATIENT
  Age: 58 Year
  Sex: Female

DRUGS (19)
  1. OCREVUS [Suspect]
     Active Substance: OCRELIZUMAB
     Route: 042
     Dates: start: 20200617
  2. VALACICLOVIR [Concomitant]
     Active Substance: VALACYCLOVIR HYDROCHLORIDE
  3. DEKRISTOL [Concomitant]
     Active Substance: CHOLECALCIFEROL
  4. PREDNISOLON [Concomitant]
     Active Substance: PREDNISOLONE
  5. PANTOPRAZOL [Concomitant]
     Active Substance: PANTOPRAZOLE SODIUM
  6. OCREVUS [Suspect]
     Active Substance: OCRELIZUMAB
     Dosage: 182 DAYS
     Route: 042
     Dates: start: 20201216
  7. CANDESARTAN. [Concomitant]
     Active Substance: CANDESARTAN
     Dosage: 8 MG/12.5 MG
  8. OCREVUS [Suspect]
     Active Substance: OCRELIZUMAB
     Route: 042
     Dates: start: 20190606
  9. OCREVUS [Suspect]
     Active Substance: OCRELIZUMAB
     Indication: RELAPSING-REMITTING MULTIPLE SCLEROSIS
     Route: 042
     Dates: start: 20181206
  10. OCREVUS [Suspect]
     Active Substance: OCRELIZUMAB
     Route: 042
     Dates: start: 20210617
  11. VALACICLOVIR [Concomitant]
     Active Substance: VALACYCLOVIR HYDROCHLORIDE
  12. VALACICLOVIR [Concomitant]
     Active Substance: VALACYCLOVIR HYDROCHLORIDE
  13. BISOPROLOL [Concomitant]
     Active Substance: BISOPROLOL
  14. VALACICLOVIR [Concomitant]
     Active Substance: VALACYCLOVIR HYDROCHLORIDE
  15. VALACICLOVIR [Concomitant]
     Active Substance: VALACYCLOVIR HYDROCHLORIDE
  16. PANTOPRAZOL [Concomitant]
     Active Substance: PANTOPRAZOLE SODIUM
  17. HYDROCORT [Concomitant]
     Dosage: AT NIGHT
  18. CORTISONE [Concomitant]
     Active Substance: CORTISONE
  19. BECLOMETASONE [Concomitant]
     Active Substance: BECLOMETHASONE DIPROPIONATE
     Dosage: DOSAGE AEROSOL

REACTIONS (18)
  - Fatigue [Recovered/Resolved]
  - Pyelonephritis [Recovered/Resolved]
  - Blood immunoglobulin A decreased [Recovering/Resolving]
  - Retinal detachment [Not Recovered/Not Resolved]
  - Blood immunoglobulin G decreased [Recovering/Resolving]
  - Dysaesthesia [Not Recovered/Not Resolved]
  - Off label use [Unknown]
  - Blood pressure systolic increased [Recovered/Resolved]
  - Fluid retention [Recovered/Resolved]
  - Restlessness [Recovered/Resolved]
  - Dyspepsia [Recovering/Resolving]
  - Tenosynovitis [Recovered/Resolved]
  - Gastrooesophageal reflux disease [Recovered/Resolved]
  - Swelling face [Not Recovered/Not Resolved]
  - Blindness transient [Recovering/Resolving]
  - Asthenia [Recovered/Resolved]
  - Gait disturbance [Not Recovered/Not Resolved]
  - Paraesthesia [Not Recovered/Not Resolved]

NARRATIVE: CASE EVENT DATE: 20181220
